FAERS Safety Report 7283367-9 (Version None)
Quarter: 2011Q1

REPORT INFORMATION
  Report Type: 
  Country: None (occurrence: None)
  Receive Date: 20110209
  Receipt Date: 20100621
  Transmission Date: 20110831
  Serious: No
  Sender: FDA-Public Use
  Company Number: A0866321A

PATIENT
  Sex: Female

DRUGS (2)
  1. PAXIL [Suspect]
     Indication: DEPRESSION
     Dosage: 10MG PER DAY
     Route: 048
  2. XANAX [Concomitant]

REACTIONS (9)
  - PSYCHIATRIC SYMPTOM [None]
  - DEPERSONALISATION [None]
  - TACHYPHRENIA [None]
  - AGITATION [None]
  - ANXIETY [None]
  - HOT FLUSH [None]
  - WITHDRAWAL SYNDROME [None]
  - AKATHISIA [None]
  - DISCOMFORT [None]
